FAERS Safety Report 14393924 (Version 12)
Quarter: 2019Q3

REPORT INFORMATION
  Report Type: Spontaneous
  Country: CA (occurrence: CA)
  Receive Date: 20180116
  Receipt Date: 20190805
  Transmission Date: 20191004
  Serious: Yes (Hospitalization, Other)
  Sender: FDA-Public Use
  Company Number: CA-CELLTRION INC.-2017CA017632

PATIENT

DRUGS (4)
  1. INFLECTRA [Suspect]
     Active Substance: INFLIXIMAB-DYYB
     Dosage: 10 MG/KG, EVERY 0, 2, 6 AND EVERY 8 WEEKS
     Route: 042
     Dates: start: 20190503, end: 20190503
  2. PREDNISONE. [Concomitant]
     Active Substance: PREDNISONE
     Dosage: 40 MG, 1X/DAY
     Route: 065
     Dates: start: 201712
  3. INFLECTRA [Suspect]
     Active Substance: INFLIXIMAB-DYYB
     Dosage: 10 MG/KG, EVERY 0, 2, 6 AND EVERY 8 WEEKS
     Route: 042
     Dates: start: 20190430
  4. INFLECTRA [Suspect]
     Active Substance: INFLIXIMAB-DYYB
     Indication: COLITIS ULCERATIVE
     Dosage: 10 MG/KG, EVERY 0, 2, 6 AND EVERY 8 WEEKS
     Route: 042
     Dates: start: 20171229

REACTIONS (12)
  - Dysuria [Unknown]
  - Abdominal pain [Unknown]
  - Flank pain [Unknown]
  - Cytomegalovirus test positive [Unknown]
  - Respiratory tract infection [Not Recovered/Not Resolved]
  - Back pain [Unknown]
  - Cold sweat [Unknown]
  - Off label use [Unknown]
  - Pallor [Unknown]
  - Condition aggravated [Not Recovered/Not Resolved]
  - Malnutrition [Unknown]
  - Product use issue [Unknown]

NARRATIVE: CASE EVENT DATE: 20171229
